FAERS Safety Report 11509713 (Version 1)
Quarter: 2015Q3

REPORT INFORMATION
  Report Type: Spontaneous
  Country: US (occurrence: US)
  Receive Date: 20150915
  Receipt Date: 20150915
  Transmission Date: 20151125
  Serious: No
  Sender: FDA-Public Use
  Company Number: US-JNJFOC-20150718140

PATIENT
  Age: 7 Decade
  Sex: Female

DRUGS (2)
  1. SEVERAL UNSPECIFIED MEDICATIONS [Concomitant]
     Active Substance: UNSPECIFIED INGREDIENT
     Route: 065
  2. TYLENOL EXTRA STRENGTH [Suspect]
     Active Substance: ACETAMINOPHEN
     Indication: BACK PAIN
     Dosage: 1-2 TIMES A DAY, (2 TABLETS EVERY NIGHT AND 1/2 A CAPLET DURING THE DAY IF NEEDED)
     Route: 048

REACTIONS (3)
  - Wrong technique in product usage process [Recovered/Resolved]
  - Dizziness [Recovered/Resolved]
  - Incorrect dose administered [Recovered/Resolved]
